FAERS Safety Report 9041392 (Version 1)
Quarter: 2013Q1

REPORT INFORMATION
  Report Type: Spontaneous
  Country: US (occurrence: None)
  Receive Date: 20130128
  Receipt Date: 20130128
  Transmission Date: 20140127
  Serious: Yes (Hospitalization)
  Sender: FDA-Public Use
  Company Number: None

PATIENT
  Age: 68 Year
  Sex: Female

DRUGS (13)
  1. AFINITOR [Suspect]
     Indication: HEPATIC CANCER
     Route: 048
     Dates: start: 20120815
  2. ALLOPURINOL [Concomitant]
  3. LEVOTHYROXIN [Concomitant]
  4. METFORMIN [Concomitant]
  5. LANTUS [Concomitant]
  6. VITAMIN D [Concomitant]
  7. NEXIUM [Concomitant]
  8. PREMARIN [Concomitant]
  9. CREON [Concomitant]
  10. SANDOSTATIN [Concomitant]
  11. BOOST [Concomitant]
  12. CITALOPRAM [Concomitant]
  13. MEGESTROLAC [Concomitant]

REACTIONS (2)
  - Dysarthria [None]
  - Urinary tract infection [None]
